FAERS Safety Report 8062213-X (Version None)
Quarter: 2012Q1

REPORT INFORMATION
  Report Type: 
  Country: None (occurrence: None)
  Receive Date: 20120123
  Receipt Date: 20120109
  Transmission Date: 20120608
  Serious: Yes (Hospitalization)
  Sender: FDA-Public Use
  Company Number: FR-MYLANLABS-2012S1000480

PATIENT
  Age: 3 Year
  Sex: Female
  Weight: 14.5 kg

DRUGS (5)
  1. CYCLOPHOSPHAMIDE [Suspect]
     Indication: PRODUCT USED FOR UNKNOWN INDICATION
     Route: 042
     Dates: start: 20111206
  2. THIOGUANINE [Suspect]
     Indication: PRODUCT USED FOR UNKNOWN INDICATION
     Route: 048
     Dates: start: 20111206, end: 20111226
  3. CYCLOPHOSPHAMIDE [Suspect]
     Route: 042
     Dates: start: 20111220
  4. ONDANSETRON [Suspect]
     Indication: PRODUCT USED FOR UNKNOWN INDICATION
     Route: 042
     Dates: start: 20111206, end: 20111221
  5. CYTARABINE [Suspect]
     Indication: PRODUCT USED FOR UNKNOWN INDICATION
     Route: 042
     Dates: start: 20111206, end: 20111221

REACTIONS (1)
  - VENOOCCLUSIVE LIVER DISEASE [None]
